FAERS Safety Report 6565549-4 (Version None)
Quarter: 2010Q1

REPORT INFORMATION
  Report Type: 
  Country: None (occurrence: None)
  Receive Date: 20100201
  Receipt Date: 20100122
  Transmission Date: 20100710
  Serious: Yes (Hospitalization)
  Sender: FDA-Public Use
  Company Number: US-ABBOTT-10P-163-0622166-00

PATIENT
  Age: 25 Year
  Sex: Male

DRUGS (3)
  1. DEPAKOTE ER [Suspect]
     Indication: CONVULSION
     Dates: start: 20070701, end: 20091218
  2. DEPAKOTE ER [Suspect]
     Dates: start: 20091218
  3. ENERGY DRINK [Suspect]
     Indication: DRUG USE FOR UNKNOWN INDICATION
     Dosage: UNKNOWN
     Dates: start: 20091201

REACTIONS (4)
  - CARDIAC DISORDER [None]
  - CONVULSION [None]
  - DRUG DISPENSING ERROR [None]
  - VOMITING [None]
